FAERS Safety Report 22253970 (Version 1)
Quarter: 2023Q2

REPORT INFORMATION
  Report Type: Spontaneous
  Country: US (occurrence: US)
  Receive Date: 20230426
  Receipt Date: 20230426
  Transmission Date: 20230722
  Serious: No
  Sender: FDA-Public Use
  Company Number: US-SA-SAC20230421000827

PATIENT
  Age: 75 Year
  Sex: Female

DRUGS (9)
  1. DUPIXENT [Suspect]
     Active Substance: DUPILUMAB
     Indication: Asthma
     Dosage: QOW
     Route: 058
     Dates: start: 20211123
  2. ALBUTEROL [Concomitant]
     Active Substance: ALBUTEROL
  3. ASCORBIC ACID [Concomitant]
     Active Substance: ASCORBIC ACID
  4. BONIVA [Concomitant]
     Active Substance: IBANDRONATE SODIUM
  5. BUSPIRONE [Concomitant]
     Active Substance: BUSPIRONE HYDROCHLORIDE
  6. CALCIUM [Concomitant]
     Active Substance: CALCIUM
  7. CALTRATE [Concomitant]
     Active Substance: CALCIUM CARBONATE
  8. COLLAGENASE [Concomitant]
     Active Substance: COLLAGENASE CLOSTRIDIUM HISTOLYTICUM
  9. COREG [Concomitant]
     Active Substance: CARVEDILOL

REACTIONS (2)
  - Asthma [Unknown]
  - Dyspnoea [Unknown]
